FAERS Safety Report 4323235-5 (Version None)
Quarter: 2004Q1

REPORT INFORMATION
  Report Type: 
  Country: None (occurrence: None)
  Receive Date: 20040324
  Receipt Date: 20040324
  Transmission Date: 20041129
  Serious: Yes (Other)
  Sender: FDA-Public Use
  Company Number: None

PATIENT
  Age: 35 Year
  Sex: Female
  Weight: 49.8957 kg

DRUGS (2)
  1. FLUOXETINE [Suspect]
     Indication: DEPRESSION
  2. SOMA [Concomitant]

REACTIONS (7)
  - ABNORMAL BEHAVIOUR [None]
  - ENERGY INCREASED [None]
  - FAMILY STRESS [None]
  - MANIA [None]
  - PROMISCUITY [None]
  - SLEEP DISORDER [None]
  - THINKING ABNORMAL [None]
